FAERS Safety Report 17353896 (Version 1)
Quarter: 2020Q1

REPORT INFORMATION
  Report Type: Spontaneous
  Country: JP (occurrence: JP)
  Receive Date: 20200131
  Receipt Date: 20200131
  Transmission Date: 20200409
  Serious: Yes (Hospitalization)
  Sender: FDA-Public Use
  Company Number: JP-GLAXOSMITHKLINE-JP2019239221

PATIENT
  Age: 25 Year
  Sex: Female

DRUGS (2)
  1. LAMISIL [Suspect]
     Active Substance: TERBINAFINE HYDROCHLORIDE
     Indication: VULVOVAGINAL CANDIDIASIS
     Dosage: UNK, AS NEEDED
     Route: 065
     Dates: start: 20190822, end: 20190822
  2. ISOCONAZOLE NITRATE [Suspect]
     Active Substance: ISOCONAZOLE NITRATE
     Indication: VULVOVAGINAL CANDIDIASIS
     Dosage: 600 MG, QD
     Route: 067
     Dates: start: 20190822, end: 20190822

REACTIONS (4)
  - Vulvovaginal pain [Recovering/Resolving]
  - Vulvovaginal swelling [Recovering/Resolving]
  - Product use issue [Unknown]
  - Exposure during pregnancy [Unknown]

NARRATIVE: CASE EVENT DATE: 20190822
